FAERS Safety Report 4605733-X (Version None)
Quarter: 2005Q1

REPORT INFORMATION
  Report Type: 
  Country: None (occurrence: None)
  Receive Date: 20050214
  Receipt Date: 20041101
  Transmission Date: 20050727
  Serious: No
  Sender: FDA-Public Use
  Company Number: USA041182742

PATIENT
  Age: 65 Year
  Sex: Male

DRUGS (5)
  1. CIALIS [Suspect]
     Dosage: 20 MG
     Dates: start: 20040601
  2. ZOCOR (SIMVASTATIN RATIOPHARM) [Concomitant]
  3. COREG [Concomitant]
  4. HYZAAR [Concomitant]
  5. LEVOXYL [Concomitant]

REACTIONS (3)
  - BLOOD TESTOSTERONE DECREASED [None]
  - DRUG INEFFECTIVE [None]
  - THERAPEUTIC RESPONSE DECREASED [None]
